FAERS Safety Report 9166470 (Version 1)
Quarter: 2013Q1

REPORT INFORMATION
  Report Type: Spontaneous
  Country: US (occurrence: US)
  Receive Date: 20130315
  Receipt Date: 20130315
  Transmission Date: 20140127
  Serious: No
  Sender: FDA-Public Use
  Company Number: US-ASTRAZENECA-2013SE09963

PATIENT
  Age: 41 Year
  Sex: Male
  Weight: 83.9 kg

DRUGS (3)
  1. SYMBICORT PMDI [Suspect]
     Indication: ASTHMA
     Dosage: 180 MCG 1 PUFF, BID
     Route: 055
     Dates: start: 20121016
  2. ALBUTEROL [Concomitant]
     Indication: ASTHMA
     Dosage: AS REQUIRED
     Route: 055
  3. ZANTAC [Concomitant]
     Indication: GASTROOESOPHAGEAL REFLUX DISEASE
     Dosage: DAILY
     Route: 048

REACTIONS (5)
  - Dyspnoea [Unknown]
  - Lower respiratory tract infection viral [Recovered/Resolved]
  - Sinusitis [Recovered/Resolved]
  - Cough [Unknown]
  - Intentional drug misuse [Unknown]
